FAERS Safety Report 23523249 (Version 2)
Quarter: 2025Q4

REPORT INFORMATION
  Report Type: Report from Study
  Country: GB (occurrence: GB)
  Receive Date: 20240214
  Receipt Date: 20251121
  Transmission Date: 20260117
  Serious: Yes (Other)
  Sender: NOVARTIS
  Company Number: GB-002147023-NVSC2021GB192362

PATIENT
  Sex: Male

DRUGS (2)
  1. COSENTYX [Suspect]
     Active Substance: SECUKINUMAB
     Indication: Ankylosing spondylitis
     Dosage: 150 MG, QMO (EVERY 30 DAYS)
     Route: 058
     Dates: start: 20200707
  2. COSENTYX [Suspect]
     Active Substance: SECUKINUMAB
     Dosage: 150 MG, QMO (E30D) (EVERY 30 DAYS) (2 PRE-FILLED DISPOSABLE INJECTION)
     Route: 058

REACTIONS (3)
  - Renal impairment [Unknown]
  - Pain [Not Recovered/Not Resolved]
  - Product prescribing issue [Unknown]
